FAERS Safety Report 4660371-8 (Version None)
Quarter: 2005Q2

REPORT INFORMATION
  Report Type: 
  Country: None (occurrence: None)
  Receive Date: 20050512
  Receipt Date: 20050509
  Transmission Date: 20051028
  Serious: Yes (Hospitalization)
  Sender: FDA-Public Use
  Company Number: US-BRISTOL-MYERS SQUIBB COMPANY-12960357

PATIENT
  Age: 52 Year
  Sex: Female
  Weight: 73 kg

DRUGS (4)
  1. CETUXIMAB [Suspect]
     Indication: SQUAMOUS CELL CARCINOMA
     Dosage: INITIAL TX ON 09-MAR-05. CONCURRENT WEEKLY TX STARTED ON 05-APR-05. EVENTS OCCURRED ON DAY 27.
     Route: 042
  2. CARBOPLATIN [Suspect]
     Indication: SQUAMOUS CELL CARCINOMA
     Dosage: DOSAGE: AUC 1.  CONCURRENT WEEKLY X 4 CHEMO STARTED ON 05-APR-05. EVENTS OCCURRED ON DAY 27.
     Route: 042
  3. PACLITAXEL [Suspect]
     Indication: SQUAMOUS CELL CARCINOMA
     Dosage: ACTUAL DOSE: 72.8 MG.  CONCURRENT WEEKLY TX X 4 STARTED ON 05-APR-05. EVENTS OCCURRED ON DAY 27.
     Route: 042
  4. RADIATION THERAPY [Suspect]
     Indication: SQUAMOUS CELL CARCINOMA
     Dosage: CONCURRENT DAILY RADIATION THERAPY WAS STARTED ON 05-APR-05.

REACTIONS (3)
  - DEHYDRATION [None]
  - MUCOSAL INFLAMMATION [None]
  - SALIVARY HYPERSECRETION [None]
